FAERS Safety Report 12233333 (Version 2)
Quarter: 2016Q2

REPORT INFORMATION
  Report Type: Spontaneous
  Country: CZ (occurrence: CZ)
  Receive Date: 20160404
  Receipt Date: 20160426
  Transmission Date: 20160815
  Serious: Yes (Hospitalization, Other)
  Sender: FDA-Public Use
  Company Number: CZ-PACIRA PHARMACEUTICALS, INC.-2016CYTCZ00016

PATIENT

DRUGS (19)
  1. MORPHIN [Concomitant]
     Active Substance: MORPHINE
     Dosage: UNK UNK, UNK
     Route: 042
  2. FILGRASTIM [Concomitant]
     Active Substance: FILGRASTIM
     Dosage: UNK UNK, UNK
     Route: 058
  3. CEFEPIME [Concomitant]
     Active Substance: CEFEPIME HYDROCHLORIDE
     Dosage: UNK UNK, UNK
     Route: 042
  4. ONDANSETRON [Concomitant]
     Active Substance: ONDANSETRON
     Dosage: UNK UNK, UNK
     Route: 042
  5. DITHIADEN [Concomitant]
     Active Substance: BISULEPIN
     Dosage: UNK UNK, UNK
     Route: 042
  6. DEXAMETHASONE. [Concomitant]
     Active Substance: DEXAMETHASONE
     Dosage: UNK UNK, UNK
     Route: 042
  7. OMEPRAZOLE. [Concomitant]
     Active Substance: OMEPRAZOLE
     Dosage: UNK UNK, UNK
     Route: 048
  8. DEXAMETHASONE. [Concomitant]
     Active Substance: DEXAMETHASONE
     Dosage: UNK UNK, UNK
     Route: 048
  9. BEVACIZUMAB [Suspect]
     Active Substance: BEVACIZUMAB
     Indication: MEDULLOBLASTOMA RECURRENT
     Dosage: 10 MG/KG, EVERY 14 DAYS
     Route: 042
  10. RANITIDIN [Concomitant]
     Active Substance: RANITIDINE HYDROCHLORIDE
     Dosage: UNK UNK, UNK
     Route: 048
  11. AMIKACINE [Concomitant]
     Active Substance: AMIKACIN
     Dosage: UNK UNK, UNK
     Route: 042
  12. CYPROHEPTADINE. [Concomitant]
     Active Substance: CYPROHEPTADINE
     Dosage: UNK UNK, UNK
     Route: 048
  13. SULFAMETHOXAZOLE AND TRIMETHOPRIM [Concomitant]
     Active Substance: SULFAMETHOXAZOLE\TRIMETHOPRIM
     Dosage: UNK UNK, UNK
     Route: 048
  14. DEPOCYT [Suspect]
     Active Substance: CYTARABINE
     Indication: MEDULLOBLASTOMA RECURRENT
     Dosage: 2 MG/KG, EVERY MONTH VIA OMMAYA RESOVOIR AND LUMBAR PUNCTURE
     Route: 050
  15. IRINOTECAN [Suspect]
     Active Substance: IRINOTECAN
     Indication: MEDULLOBLASTOMA RECURRENT
     Dosage: 125 MG/M2, UNK EVERY 14 DAYS
     Route: 042
  16. TEICOPLANINE [Concomitant]
     Active Substance: TEICOPLANIN
     Dosage: UNK UNK, UNK
     Route: 042
  17. MIDAZOLAM [Concomitant]
     Active Substance: MIDAZOLAM\MIDAZOLAM HYDROCHLORIDE
     Dosage: UNK UNK, UNK
     Route: 042
  18. METAMIZOLE [Concomitant]
     Active Substance: METAMIZOLE
     Dosage: UNK UNK, UNK
     Route: 042
  19. NALBUPHINE [Concomitant]
     Active Substance: NALBUPHINE
     Dosage: UNK UNK, UNK
     Route: 042

REACTIONS (4)
  - Drug administered to patient of inappropriate age [Unknown]
  - Febrile neutropenia [Recovered/Resolved]
  - Pancytopenia [Recovered/Resolved]
  - Off label use [Recovered/Resolved]
